FAERS Safety Report 14381833 (Version 3)
Quarter: 2018Q1

REPORT INFORMATION
  Report Type: Spontaneous
  Country: SK (occurrence: SK)
  Receive Date: 20180112
  Receipt Date: 20180123
  Transmission Date: 20180509
  Serious: Yes (Other)
  Sender: FDA-Public Use
  Company Number: SK-PFIZER INC-2018015059

PATIENT
  Age: 58 Year
  Sex: Female

DRUGS (2)
  1. CYTARABINE. [Suspect]
     Active Substance: CYTARABINE
     Indication: ACUTE MYELOID LEUKAEMIA
     Dosage: INDUCTIVE THERAPY 7+3
     Dates: start: 201609
  2. CYTARABINE. [Suspect]
     Active Substance: CYTARABINE
     Dosage: REINDUCTION OF THERAPY
     Dates: start: 201610

REACTIONS (2)
  - Pneumonia [Unknown]
  - Blast cell count increased [Unknown]

NARRATIVE: CASE EVENT DATE: 201609
